FAERS Safety Report 24133715 (Version 4)
Quarter: 2025Q2

REPORT INFORMATION
  Report Type: Spontaneous
  Country: JP (occurrence: JP)
  Receive Date: 20240724
  Receipt Date: 20250625
  Transmission Date: 20250717
  Serious: Yes (Hospitalization)
  Sender: EISAI
  Company Number: JP-Eisai-202404695_DVG_P_1

PATIENT
  Age: 34 Year
  Sex: Female

DRUGS (5)
  1. DAYVIGO [Suspect]
     Active Substance: LEMBOREXANT
     Indication: Product used for unknown indication
     Route: 048
  2. DAYVIGO [Suspect]
     Active Substance: LEMBOREXANT
     Dosage: TOOK 146 TABLETS OF DAYVIGO 5 MG.
     Route: 048
     Dates: start: 20240709, end: 20240709
  3. LUNESTA [Suspect]
     Active Substance: ESZOPICLONE
     Indication: Product used for unknown indication
     Dosage: TOOK 26 TABLETS OF 3 MG.
     Dates: start: 20240709, end: 20240709
  4. LUNESTA [Suspect]
     Active Substance: ESZOPICLONE
  5. ALCOHOL [Suspect]
     Active Substance: ALCOHOL
     Indication: Product used for unknown indication

REACTIONS (4)
  - Altered state of consciousness [Recovered/Resolved]
  - Dizziness [Recovered/Resolved]
  - Intentional overdose [Recovered/Resolved]
  - Suicide attempt [Recovered/Resolved]

NARRATIVE: CASE EVENT DATE: 20240709
